FAERS Safety Report 14222185 (Version 1)
Quarter: 2017Q4

REPORT INFORMATION
  Report Type: Spontaneous
  Country: US (occurrence: US)
  Receive Date: 20171124
  Receipt Date: 20171124
  Transmission Date: 20180321
  Serious: No
  Sender: FDA-Public Use
  Company Number: US-009507513-1711USA008380

PATIENT
  Age: 13 Year
  Sex: Female

DRUGS (1)
  1. INTRON A [Suspect]
     Active Substance: INTERFERON ALFA-2B
     Indication: BENIGN LARYNGEAL NEOPLASM
     Dosage: 25 MILLION IU, AS DIRECTED
     Route: 058
     Dates: start: 20140422

REACTIONS (5)
  - Arthralgia [Unknown]
  - Injection site reaction [Unknown]
  - Bone pain [Unknown]
  - Drug administered to patient of inappropriate age [Unknown]
  - Headache [Unknown]

NARRATIVE: CASE EVENT DATE: 20140422
